FAERS Safety Report 8005395-8 (Version None)
Quarter: 2011Q4

REPORT INFORMATION
  Report Type: 
  Country: None (occurrence: None)
  Receive Date: 20111223
  Receipt Date: 20111219
  Transmission Date: 20120403
  Serious: Yes (Other)
  Sender: FDA-Public Use
  Company Number: US-SANOFI-AVENTIS-2011SA083802

PATIENT
  Age: 75 Year
  Sex: Female

DRUGS (2)
  1. NICOTINE POLACRILEX [Suspect]
     Route: 002
  2. PLAVIX [Suspect]
     Route: 048
     Dates: end: 20110301

REACTIONS (5)
  - DRUG ADMINISTRATION ERROR [None]
  - NICOTINE DEPENDENCE [None]
  - INTENTIONAL DRUG MISUSE [None]
  - NASAL OBSTRUCTION [None]
  - ULCER HAEMORRHAGE [None]
